FAERS Safety Report 8171642-5 (Version None)
Quarter: 2012Q1

REPORT INFORMATION
  Report Type: 
  Country: None (occurrence: None)
  Receive Date: 20120228
  Receipt Date: 20120220
  Transmission Date: 20120608
  Serious: No
  Sender: FDA-Public Use
  Company Number: US-BAYER-2012-017982

PATIENT
  Age: 27 Year
  Sex: Female
  Weight: 79 kg

DRUGS (2)
  1. ALEVE (CAPLET) [Suspect]
     Indication: DYSMENORRHOEA
     Dosage: 1 U, QOD
     Route: 048
     Dates: start: 20120219
  2. ACETAMINOPHEN [Concomitant]

REACTIONS (2)
  - DRUG SCREEN POSITIVE [None]
  - SOMNOLENCE [None]
